FAERS Safety Report 7237292-X (Version None)
Quarter: 2011Q1

REPORT INFORMATION
  Report Type: 
  Country: None (occurrence: None)
  Receive Date: 20110121
  Receipt Date: 20110112
  Transmission Date: 20110831
  Serious: No
  Sender: FDA-Public Use
  Company Number: US-B.I. PHARMACEUTICALS,INC./RIDGEFIELD-2011-BP-01147BP

PATIENT
  Sex: Female

DRUGS (10)
  1. CRESTOR [Concomitant]
     Indication: BLOOD CHOLESTEROL INCREASED
     Dosage: 40 MG
  2. GABAPENTIN [Concomitant]
     Indication: NEUROPATHY PERIPHERAL
  3. POTASSIUM [Concomitant]
     Indication: BLOOD POTASSIUM DECREASED
  4. PRADAXA [Suspect]
     Indication: ATRIAL FIBRILLATION
     Dosage: 300 MG
     Route: 048
     Dates: start: 20110102
  5. TOPROL-XL [Concomitant]
     Indication: CARDIAC DISORDER
     Dosage: 20 MG
  6. GABAPENTIN [Concomitant]
     Indication: ARTHRITIS
     Dosage: 800 MG
  7. NOVOLIN 70/30 [Concomitant]
     Indication: DIABETES MELLITUS
  8. NOVOLOG [Concomitant]
     Indication: DIABETES MELLITUS
  9. OMEPRAZOLE [Concomitant]
     Indication: ABDOMINAL DISCOMFORT
  10. EMERIL [Concomitant]
     Indication: DIABETES MELLITUS
     Dosage: 4 MG

REACTIONS (2)
  - HEADACHE [None]
  - CHILLS [None]
